FAERS Safety Report 16131870 (Version 1)
Quarter: 2019Q1

REPORT INFORMATION
  Report Type: Spontaneous
  Country: US (occurrence: US)
  Receive Date: 20190225
  Receipt Date: 20190225
  Transmission Date: 20190418
  Serious: Yes (Hospitalization)
  Sender: FDA-Public Use
  Company Number: None

PATIENT
  Sex: Female

DRUGS (6)
  1. OMEPRAZOLE 20 MG [Concomitant]
     Active Substance: OMEPRAZOLE
  2. RANITIDINE 300 MG [Concomitant]
  3. VITAMIN D3 1000 UNITS [Concomitant]
  4. VALACYCLOVIR [Concomitant]
     Active Substance: VALACYCLOVIR HYDROCHLORIDE
  5. MYCOPHENOLATE 500 MG [Suspect]
     Active Substance: MYCOPHENOLATE MOFETIL
     Indication: TRANSPLANT
     Dosage: ?          OTHER DOSE:2 TABS Q AM AND. 1;?
     Route: 048
     Dates: start: 20130926
  6. FISH OIL  CAP 1200MG [Concomitant]

REACTIONS (1)
  - Hospitalisation [None]
